FAERS Safety Report 26113953 (Version 2)
Quarter: 2025Q4

REPORT INFORMATION
  Report Type: Spontaneous
  Country: US (occurrence: US)
  Receive Date: 20251202
  Receipt Date: 20251203
  Transmission Date: 20260118
  Serious: Yes (Other)
  Sender: PFIZER
  Company Number: US-PFIZER INC-PV202500138556

PATIENT
  Age: 54 Year
  Sex: Male

DRUGS (4)
  1. DOXORUBICIN HYDROCHLORIDE [Suspect]
     Active Substance: DOXORUBICIN HYDROCHLORIDE
     Indication: Follicular thyroid cancer
     Dosage: UNK
  2. DOXORUBICIN HYDROCHLORIDE [Suspect]
     Active Substance: DOXORUBICIN HYDROCHLORIDE
     Indication: Testicular choriocarcinoma
  3. MITOMYCIN C [Suspect]
     Active Substance: MITOMYCIN
     Indication: Follicular thyroid cancer
     Dosage: UNK
  4. MITOMYCIN C [Suspect]
     Active Substance: MITOMYCIN
     Indication: Testicular choriocarcinoma

REACTIONS (2)
  - Myelitis transverse [Recovering/Resolving]
  - Toxicity to various agents [Recovering/Resolving]
